FAERS Safety Report 7837650-6 (Version None)
Quarter: 2011Q4

REPORT INFORMATION
  Report Type: 
  Country: None (occurrence: None)
  Receive Date: 20111024
  Receipt Date: 20111014
  Transmission Date: 20120403
  Serious: Yes (Hospitalization)
  Sender: FDA-Public Use
  Company Number: ES-ABBOTT-11P-144-0700565-00

PATIENT
  Age: 38 Year
  Sex: Male

DRUGS (1)
  1. ADALIMUMAB [Suspect]
     Indication: PSORIASIS
     Route: 058
     Dates: start: 20100101, end: 20101110

REACTIONS (2)
  - HISTIOCYTOSIS HAEMATOPHAGIC [None]
  - VISCERAL LEISHMANIASIS [None]
